FAERS Safety Report 4750062-7 (Version None)
Quarter: 2005Q3

REPORT INFORMATION
  Report Type: 
  Country: None (occurrence: None)
  Receive Date: 20050822
  Receipt Date: 20050808
  Transmission Date: 20060218
  Serious: Yes (Other)
  Sender: FDA-Public Use
  Company Number: US015766

PATIENT
  Age: 21 Year
  Sex: Female

DRUGS (5)
  1. PROVIGIL [Suspect]
     Indication: MULTIPLE SCLEROSIS
     Dosage: 200 MG ORAL
     Route: 048
     Dates: start: 20050201, end: 20050201
  2. NIFEDIPINE [Concomitant]
  3. AMITRIPTYLINE HCL [Concomitant]
  4. PHENTOLAMINE MESYLATE [Concomitant]
  5. CALCICHEW [Concomitant]

REACTIONS (5)
  - CHILLBLAINS [None]
  - CONNECTIVE TISSUE DISORDER [None]
  - HISTONE ANTIBODY POSITIVE [None]
  - JOINT SWELLING [None]
  - SYSTEMIC LUPUS ERYTHEMATOSUS RASH [None]
